FAERS Safety Report 6528483-1 (Version None)
Quarter: 2009Q4

REPORT INFORMATION
  Report Type: 
  Country: None (occurrence: None)
  Receive Date: 20091229
  Receipt Date: 20091215
  Transmission Date: 20100525
  Serious: Yes (Death, Hospitalization)
  Sender: FDA-Public Use
  Company Number: B0619376A

PATIENT
  Age: 50 Year
  Sex: Female

DRUGS (6)
  1. BUSULPHAN        (FORMULATION UNKNOWN) [Suspect]
     Indication: MULTIPLE MYELOMA
     Dates: start: 20060301
  2. FLUDARABINE PHOSPHATE (FLUDARABINE PHOSPHATE) (FORMULATION UNKNOWN) [Suspect]
     Dates: start: 20060301
  3. CYCLOSPORINE [Suspect]
     Dates: start: 20060301
  4. METHOTREXATE [Suspect]
     Dates: start: 20060301
  5. PREDNISONE (PREDNISONE) (FORMULATION UNKNOWN) [Suspect]
     Indication: GRAFT VERSUS HOST DISEASE
     Dates: start: 20060701
  6. MYCOPHENOLATE MOFETIL [Suspect]
     Indication: GRAFT VERSUS HOST DISEASE

REACTIONS (11)
  - ACUTE GRAFT VERSUS HOST DISEASE IN INTESTINE [None]
  - BLINDNESS [None]
  - CAROTID ARTERY THROMBOSIS [None]
  - CEREBRAL ARTERY THROMBOSIS [None]
  - CEREBRAL HAEMORRHAGE [None]
  - CEREBRAL ISCHAEMIA [None]
  - EYELID OEDEMA [None]
  - RETINAL ISCHAEMIA [None]
  - SEPTIC EMBOLUS [None]
  - SINUSITIS FUNGAL [None]
  - SYSTEMIC MYCOSIS [None]
